FAERS Safety Report 9201365 (Version 1)
Quarter: 2013Q2

REPORT INFORMATION
  Report Type: Spontaneous
  Country: US (occurrence: US)
  Receive Date: 20130401
  Receipt Date: 20130401
  Transmission Date: 20140414
  Serious: Yes (Hospitalization, Other)
  Sender: FDA-Public Use
  Company Number: US-BRISTOL-MYERS SQUIBB COMPANY-18732396

PATIENT
  Age: 78 Year
  Sex: Female
  Weight: 72.11 kg

DRUGS (1)
  1. COUMADIN [Suspect]
     Indication: ATRIAL FIBRILLATION
     Dosage: INTIALLY LOW DOSE, LATER 5MG

REACTIONS (2)
  - Stent placement [Unknown]
  - Arthritis [Unknown]
